FAERS Safety Report 6183902-8 (Version None)
Quarter: 2009Q2

REPORT INFORMATION
  Report Type: 
  Country: None (occurrence: None)
  Receive Date: 20090508
  Receipt Date: 20090501
  Transmission Date: 20091009
  Serious: Yes (Hospitalization)
  Sender: FDA-Public Use
  Company Number: GB-ROCHE-630957

PATIENT
  Sex: Male
  Weight: 120 kg

DRUGS (2)
  1. ORLISTAT [Suspect]
     Indication: OBESITY
     Route: 048
     Dates: start: 20081125
  2. LYRICA [Concomitant]
     Indication: HEADACHE
     Route: 048

REACTIONS (1)
  - MENINGITIS VIRAL [None]
